FAERS Safety Report 22019497 (Version 1)
Quarter: 2023Q1

REPORT INFORMATION
  Report Type: Other
  Country: None (occurrence: US)
  Receive Date: 20230222
  Receipt Date: 20230222
  Transmission Date: 20230418
  Serious: Yes (Hospitalization)
  Sender: FDA-Public Use
  Company Number: US-ASPIRO PHARMA LTD-2138297

PATIENT
  Age: 30 Year
  Sex: Female
  Weight: 69.9 kg

DRUGS (4)
  1. SUCCINYLCHOLINE CHLORIDE [Suspect]
     Active Substance: SUCCINYLCHOLINE CHLORIDE
     Indication: Laryngospasm
     Route: 042
  2. PROPOFOL [Concomitant]
     Active Substance: PROPOFOL
     Route: 065
  3. ROCURONIUM [Concomitant]
     Active Substance: ROCURONIUM BROMIDE
     Route: 065
  4. Sugam madex [Concomitant]
     Route: 065

REACTIONS (1)
  - Neuromuscular block prolonged [Unknown]
